FAERS Safety Report 8973729 (Version 4)
Quarter: 2013Q1

REPORT INFORMATION
  Report Type: Spontaneous
  Country: US (occurrence: US)
  Receive Date: 20121218
  Receipt Date: 20130211
  Transmission Date: 20140127
  Serious: Yes (Hospitalization)
  Sender: FDA-Public Use
  Company Number: US-GILEAD-2012-0066243

PATIENT
  Age: 19 Year
  Sex: Female

DRUGS (4)
  1. LETAIRIS [Suspect]
     Indication: PULMONARY HYPERTENSION
     Dosage: 5 MG, QD
     Route: 048
     Dates: start: 20110831
  2. LETAIRIS [Suspect]
     Indication: HIV INFECTION
  3. REMODULIN [Concomitant]
     Indication: PULMONARY HYPERTENSION
  4. ADCIRCA [Concomitant]
     Indication: PULMONARY HYPERTENSION

REACTIONS (6)
  - Cough [Not Recovered/Not Resolved]
  - Pulmonary hypertension [Unknown]
  - Oxygen saturation decreased [Recovered/Resolved]
  - Heart rate increased [Recovered/Resolved]
  - Headache [Recovered/Resolved]
  - Fluid retention [Not Recovered/Not Resolved]
